FAERS Safety Report 7219848-3 (Version None)
Quarter: 2011Q1

REPORT INFORMATION
  Report Type: 
  Country: None (occurrence: None)
  Receive Date: 20110111
  Receipt Date: 20110104
  Transmission Date: 20110831
  Serious: Yes (Other)
  Sender: FDA-Public Use
  Company Number: TW-SHIRE-ALL1-2010-04930

PATIENT
  Sex: Male
  Weight: 30 kg

DRUGS (2)
  1. IDURSULFASE [Suspect]
     Indication: MUCOPOLYSACCHARIDOSIS II
     Dosage: 18 MG, 1X/WEEK
     Route: 041
     Dates: start: 20080103
  2. LOSARTAN POTASSIUM [Concomitant]
     Indication: LEFT VENTRICULAR HYPERTROPHY
     Dosage: UNK, 1X/DAY:QD
     Route: 048
     Dates: start: 20081231

REACTIONS (5)
  - CRYING [None]
  - FEELING COLD [None]
  - IRRITABILITY [None]
  - PALLOR [None]
  - INFUSION RELATED REACTION [None]
